FAERS Safety Report 10019890 (Version 3)
Quarter: 2014Q2

REPORT INFORMATION
  Report Type: Spontaneous
  Country: US (occurrence: US)
  Receive Date: 20140318
  Receipt Date: 20140618
  Transmission Date: 20141212
  Serious: No
  Sender: FDA-Public Use
  Company Number: US-GALDERMA-US14000234

PATIENT
  Age: 36 Year
  Sex: Female

DRUGS (5)
  1. MIRVASO (BRIMONIDINE) TOPICAL GEL, 0.33% [Suspect]
     Indication: ROSACEA
     Dosage: 0.33%
     Route: 061
     Dates: start: 20131114, end: 20131122
  2. MICROGESTIN FE [Concomitant]
     Dosage: 1.5/30
     Route: 048
  3. OBAGI GENTLE CLEANSER [Concomitant]
     Route: 061
  4. CETAPHIL DAILY FACIAL MOISTURIZER SPF15 [Concomitant]
     Route: 061
  5. MULTIVITAMIN [Concomitant]

REACTIONS (5)
  - Feeling hot [Recovered/Resolved]
  - Flushing [Recovered/Resolved]
  - Erythema [Recovered/Resolved]
  - Pain of skin [Recovered/Resolved]
  - Skin burning sensation [Recovered/Resolved]
